FAERS Safety Report 4713619-5 (Version None)
Quarter: 2005Q3

REPORT INFORMATION
  Report Type: 
  Country: None (occurrence: None)
  Receive Date: 20050712
  Receipt Date: 20050627
  Transmission Date: 20060218
  Serious: Yes (Hospitalization)
  Sender: FDA-Public Use
  Company Number: JP_050606884

PATIENT
  Age: 64 Year
  Sex: Male

DRUGS (3)
  1. PEMETREXED [Suspect]
     Indication: NON-SMALL CELL LUNG CANCER
     Dosage: 1000 MG/M2 OTHER
     Dates: start: 20050422
  2. PANVITAN [Concomitant]
  3. HYDROXOCOBALAMIN ACETATE [Concomitant]

REACTIONS (6)
  - CANCER PAIN [None]
  - CONDITION AGGRAVATED [None]
  - DISEASE PROGRESSION [None]
  - LYMPHADENOPATHY MEDIASTINAL [None]
  - LYMPHANGIOSIS CARCINOMATOSA [None]
  - PNEUMONITIS [None]
